FAERS Safety Report 8163518-4 (Version None)
Quarter: 2012Q1

REPORT INFORMATION
  Report Type: 
  Country: None (occurrence: None)
  Receive Date: 20120224
  Receipt Date: 20120214
  Transmission Date: 20120608
  Serious: Yes (Hospitalization)
  Sender: FDA-Public Use
  Company Number: FR-ELI_LILLY_AND_COMPANY-FR201202003848

PATIENT
  Sex: Female

DRUGS (3)
  1. ALIMTA [Suspect]
     Indication: LUNG ADENOCARCINOMA METASTATIC
     Dosage: 780 MG / CYCLE (DOSE DEPENDING OF CYCLE)
     Route: 042
     Dates: start: 20111019
  2. CISPLATIN [Concomitant]
     Indication: LUNG ADENOCARCINOMA METASTATIC
     Dosage: 117 MG / CYCLE (DOSE DEPENDING OF CYCLE)
     Dates: start: 20111019
  3. AVASTIN [Concomitant]
     Indication: LUNG ADENOCARCINOMA METASTATIC
     Dosage: 412 MG / CYCLE (DOSE DEPENDING OF CYCLE)
     Dates: start: 20111019

REACTIONS (2)
  - DEEP VEIN THROMBOSIS [None]
  - PHLEBITIS [None]
